FAERS Safety Report 6141338-X (Version None)
Quarter: 2009Q2

REPORT INFORMATION
  Report Type: 
  Country: None (occurrence: None)
  Receive Date: 20090402
  Receipt Date: 20090325
  Transmission Date: 20091009
  Serious: Yes (Hospitalization)
  Sender: FDA-Public Use
  Company Number: FR-ROCHE-624052

PATIENT
  Sex: Female

DRUGS (4)
  1. XELODA [Suspect]
     Route: 048
     Dates: start: 20081230, end: 20090113
  2. NAVELBINE [Suspect]
     Route: 042
     Dates: start: 20081208, end: 20090106
  3. TAXOL [Concomitant]
     Dosage: 4 CYCLES OF TAXOL, DOSE 75 MG/M2 AND FROM 2 CYCLE 90 MG/M2 ON DAY 1,8 AND 15
     Dates: start: 20080707, end: 20081124
  4. AVASTIN [Concomitant]
     Dosage: CYCLES EVERY THREE WEEKS  DOSE: 10 MG/KG
     Dates: start: 20080707, end: 20081124

REACTIONS (3)
  - APLASIA [None]
  - ASCITES [None]
  - NEUROPATHY PERIPHERAL [None]
